FAERS Safety Report 16821294 (Version 1)
Quarter: 2019Q3

REPORT INFORMATION
  Report Type: Spontaneous
  Country: FI (occurrence: FI)
  Receive Date: 20190918
  Receipt Date: 20190918
  Transmission Date: 20191005
  Serious: Yes (Other)
  Sender: FDA-Public Use
  Company Number: FI-SA-2019SA258048

PATIENT
  Age: 55 Year
  Sex: Male

DRUGS (1)
  1. KEVZARA [Suspect]
     Active Substance: SARILUMAB
     Indication: RHEUMATOID ARTHRITIS
     Dosage: UNK
     Dates: start: 201902, end: 2019

REACTIONS (4)
  - Pain [Unknown]
  - Drug ineffective [Unknown]
  - Joint swelling [Unknown]
  - White blood cell count [Unknown]

NARRATIVE: CASE EVENT DATE: 2019
